FAERS Safety Report 6975048-3 (Version None)
Quarter: 2010Q3

REPORT INFORMATION
  Report Type: 
  Country: None (occurrence: None)
  Receive Date: 20100910
  Receipt Date: 20090126
  Transmission Date: 20110219
  Serious: No
  Sender: FDA-Public Use
  Company Number: US-WYE-H07925809

PATIENT
  Sex: Male

DRUGS (3)
  1. PRISTIQ [Suspect]
     Indication: DEPRESSION
     Route: 048
     Dates: start: 20090123, end: 20090123
  2. PRISTIQ [Suspect]
     Indication: ANXIETY
  3. CLONAZEPAM [Concomitant]

REACTIONS (3)
  - ANXIETY [None]
  - NAUSEA [None]
  - NIGHT SWEATS [None]
